FAERS Safety Report 16653112 (Version 2)
Quarter: 2019Q3

REPORT INFORMATION
  Report Type: Report from Study
  Country: JP (occurrence: JP)
  Receive Date: 20190731
  Receipt Date: 20190904
  Transmission Date: 20191004
  Serious: Yes (Hospitalization)
  Sender: FDA-Public Use
  Company Number: JP-EISAI MEDICAL RESEARCH-EC-2019-059661

PATIENT
  Age: 66 Year
  Sex: Female
  Weight: 41 kg

DRUGS (15)
  1. PICOSULFATE NA [Concomitant]
     Active Substance: SODIUM PICOSULFATE
  2. PERTUZUMAB. [Suspect]
     Active Substance: PERTUZUMAB
     Indication: BREAST CANCER
     Route: 041
     Dates: start: 20190709
  3. LOXONIN [Concomitant]
     Active Substance: LOXOPROFEN SODIUM
  4. RANMARK [Concomitant]
     Active Substance: DENOSUMAB
  5. AMLODIPINE [Concomitant]
     Active Substance: AMLODIPINE BESYLATE
  6. CALONAL [Concomitant]
     Active Substance: ACETAMINOPHEN
  7. DENOTAS [Concomitant]
     Active Substance: CALCIUM CARBONATE\CHOLECALCIFEROL\MAGNESIUM CARBONATE
  8. LANSOPRAZOLE. [Concomitant]
     Active Substance: LANSOPRAZOLE
  9. TRASTUZUMAB. [Suspect]
     Active Substance: TRASTUZUMAB
     Indication: BREAST CANCER
     Route: 041
     Dates: start: 20190709
  10. MAGNESIUM OXIDE. [Concomitant]
     Active Substance: MAGNESIUM OXIDE
  11. HALAVEN [Suspect]
     Active Substance: ERIBULIN MESYLATE
     Indication: BREAST CANCER
     Route: 042
     Dates: start: 20190709
  12. ROZEX (METRONIDAZOLE) [Concomitant]
     Active Substance: METRONIDAZOLE
  13. PRIMPERAN [Concomitant]
     Active Substance: METOCLOPRAMIDE HYDROCHLORIDE
  14. BROTIZOLAM OD [Concomitant]
  15. ASTOMIN [Concomitant]
     Active Substance: DIMEMORFAN

REACTIONS (1)
  - Vomiting [Not Recovered/Not Resolved]

NARRATIVE: CASE EVENT DATE: 20190720
